FAERS Safety Report 23096910 (Version 2)
Quarter: 2024Q1

REPORT INFORMATION
  Report Type: Report from Study
  Country: US (occurrence: US)
  Receive Date: 20231023
  Receipt Date: 20240104
  Transmission Date: 20240409
  Serious: Yes (Hospitalization)
  Sender: FDA-Public Use
  Company Number: US-BAYER-2023A149134

PATIENT
  Age: 33 Year
  Sex: Female
  Weight: 63.492 kg

DRUGS (13)
  1. ADEMPAS [Suspect]
     Active Substance: RIOCIGUAT
     Indication: Pulmonary arterial hypertension
     Dosage: UNK
  2. ADEMPAS [Suspect]
     Active Substance: RIOCIGUAT
     Indication: Pulmonary arterial hypertension
     Dosage: 2.5 MG, TID
     Route: 048
  3. UPTRAVI [Suspect]
     Active Substance: SELEXIPAG
     Indication: Pulmonary hypertension
     Dosage: 3200 MCG
  4. TYLENOL [Concomitant]
     Active Substance: ACETAMINOPHEN
  5. POTASSIUM CHLORIDE [Concomitant]
     Active Substance: POTASSIUM CHLORIDE
  6. TADALAFIL [Concomitant]
     Active Substance: TADALAFIL
  7. ASPIRIN [Concomitant]
     Active Substance: ASPIRIN
  8. FLUTICASONE PROPIONATE [Concomitant]
     Active Substance: FLUTICASONE PROPIONATE
  9. OPSUMIT [Concomitant]
     Active Substance: MACITENTAN
  10. OXYGEN [Concomitant]
     Active Substance: OXYGEN
  11. ATROVENT HFA [Concomitant]
     Active Substance: IPRATROPIUM BROMIDE
  12. SENOKOT [Concomitant]
     Active Substance: SENNOSIDES
  13. FUROSEMIDE [Concomitant]
     Active Substance: FUROSEMIDE

REACTIONS (4)
  - Tachycardia [Not Recovered/Not Resolved]
  - Weight decreased [None]
  - Appetite disorder [None]
  - Therapy cessation [None]

NARRATIVE: CASE EVENT DATE: 20231018
